FAERS Safety Report 20941603 (Version 1)
Quarter: 2022Q2

REPORT INFORMATION
  Report Type: Spontaneous
  Country: US (occurrence: US)
  Receive Date: 20220610
  Receipt Date: 20220610
  Transmission Date: 20220720
  Serious: Yes (Hospitalization, Other)
  Sender: FDA-Public Use
  Company Number: US-SA-SAC20220607001852

PATIENT

DRUGS (1)
  1. DUPIXENT [Suspect]
     Active Substance: DUPILUMAB
     Indication: Nasal polyps

REACTIONS (6)
  - Renal failure [Unknown]
  - Hypereosinophilic syndrome [Unknown]
  - Eosinophilic granulomatosis with polyangiitis [Unknown]
  - Eosinophilia [Unknown]
  - Inflammation [Unknown]
  - Product use in unapproved indication [Unknown]
